FAERS Safety Report 7045348-X (Version None)
Quarter: 2010Q4

REPORT INFORMATION
  Report Type: 
  Country: None (occurrence: None)
  Receive Date: 20101008
  Receipt Date: 20101008
  Transmission Date: 20110411
  Serious: No
  Sender: FDA-Public Use
  Company Number: None

PATIENT
  Age: 77 Year
  Sex: Female
  Weight: 89.8122 kg

DRUGS (1)
  1. FOSAMAX [Suspect]
     Indication: OSTEOPOROSIS
     Dosage: 70 MG 1 PER WK

REACTIONS (5)
  - FALL [None]
  - FEMUR FRACTURE [None]
  - HEAD INJURY [None]
  - PAIN [None]
  - PATHOLOGICAL FRACTURE [None]
